FAERS Safety Report 5724320-3 (Version None)
Quarter: 2008Q2

REPORT INFORMATION
  Report Type: 
  Country: None (occurrence: None)
  Receive Date: 20080430
  Receipt Date: 20080418
  Transmission Date: 20081010
  Serious: Yes (Other)
  Sender: FDA-Public Use
  Company Number: US-PFIZER INC-2008021992

PATIENT
  Sex: Male
  Weight: 81.6 kg

DRUGS (2)
  1. CHANTIX [Suspect]
     Indication: SMOKING CESSATION THERAPY
     Route: 048
  2. ANTIBIOTICS [Concomitant]
     Indication: NASOPHARYNGITIS

REACTIONS (11)
  - ABDOMINAL PAIN UPPER [None]
  - CONSTIPATION [None]
  - DIZZINESS [None]
  - DRUG DOSE OMISSION [None]
  - EUPHORIC MOOD [None]
  - FEELING ABNORMAL [None]
  - FEELING DRUNK [None]
  - FEELING HOT [None]
  - HAEMATOCHEZIA [None]
  - HEADACHE [None]
  - HYPERSENSITIVITY [None]
